FAERS Safety Report 6763426-7 (Version None)
Quarter: 2010Q2

REPORT INFORMATION
  Report Type: 
  Country: None (occurrence: None)
  Receive Date: 20100610
  Receipt Date: 20100531
  Transmission Date: 20101027
  Serious: Yes (Other)
  Sender: FDA-Public Use
  Company Number: CA-JNJFOC-20100601118

PATIENT
  Sex: Male
  Weight: 74 kg

DRUGS (4)
  1. REMICADE [Suspect]
     Indication: CROHN'S DISEASE
     Route: 042
  2. REMICADE [Suspect]
     Dosage: LOADING DOSE
     Route: 042
  3. IMURAN [Concomitant]
  4. DICETEL [Concomitant]

REACTIONS (1)
  - HAEMATOCHEZIA [None]
